FAERS Safety Report 7270827-X (Version None)
Quarter: 2011Q1

REPORT INFORMATION
  Report Type: 
  Country: None (occurrence: None)
  Receive Date: 20110125
  Receipt Date: 20110125
  Transmission Date: 20110831
  Serious: Yes (Death)
  Sender: FDA-Public Use
  Company Number: None

PATIENT
  Sex: Female

DRUGS (1)
  1. CLOZARIL [Suspect]
     Indication: SCHIZOAFFECTIVE DISORDER
     Dosage: 800MG EVERY DAY PO (MONTHS)
     Route: 048

REACTIONS (4)
  - DEPRESSION [None]
  - FEAR OF FALLING [None]
  - ANXIETY [None]
  - DIABETES MELLITUS [None]
